FAERS Safety Report 20094021 (Version 1)
Quarter: 2021Q4

REPORT INFORMATION
  Report Type: Spontaneous
  Country: US (occurrence: US)
  Receive Date: 20211121
  Receipt Date: 20211121
  Transmission Date: 20220304
  Serious: No
  Sender: FDA-Public Use
  Company Number: US-JNJFOC-20211053154

PATIENT
  Age: 91 Year
  Sex: Male

DRUGS (2)
  1. ZYTIGA [Suspect]
     Active Substance: ABIRATERONE ACETATE
     Indication: Product used for unknown indication
     Route: 048
  2. ZYTIGA [Suspect]
     Active Substance: ABIRATERONE ACETATE
     Route: 048
     Dates: start: 20211012

REACTIONS (2)
  - Pain in extremity [Not Recovered/Not Resolved]
  - Muscle fatigue [Not Recovered/Not Resolved]

NARRATIVE: CASE EVENT DATE: 20211012
